FAERS Safety Report 21892624 (Version 1)
Quarter: 2023Q1

REPORT INFORMATION
  Report Type: Report from Study
  Country: CA (occurrence: CA)
  Receive Date: 20230120
  Receipt Date: 20230120
  Transmission Date: 20230418
  Serious: Yes (Death)
  Sender: FDA-Public Use
  Company Number: CA-BEIGENE, LTD-BGN-2023-000443

PATIENT

DRUGS (18)
  1. BRUKINSA [Suspect]
     Active Substance: ZANUBRUTINIB
     Indication: Mantle cell lymphoma
     Dosage: 80 MILLIGRAM, BID
     Route: 048
     Dates: start: 20221125
  2. ACETAMINOPHEN [Concomitant]
     Active Substance: ACETAMINOPHEN
     Dosage: UNK
  3. ALLOPURINOL [Concomitant]
     Active Substance: ALLOPURINOL
  4. CEFTRIAXONE [Concomitant]
     Active Substance: CEFTRIAXONE
  5. CLONIDINE [Concomitant]
     Active Substance: CLONIDINE
  6. DIGOXIN [Concomitant]
     Active Substance: DIGOXIN
     Dosage: UNK
  7. DILTIAZEM [Concomitant]
     Active Substance: DILTIAZEM
  8. DIMENHYDRINATE [Concomitant]
     Active Substance: DIMENHYDRINATE
  9. FUROSEMIDE [Concomitant]
     Active Substance: FUROSEMIDE
  10. HALOPERIDOL [Concomitant]
     Active Substance: HALOPERIDOL
  11. LEVOTHYROXINE SODIUM [Concomitant]
     Active Substance: LEVOTHYROXINE SODIUM
  12. PANTOPRAZOLE [Concomitant]
     Active Substance: PANTOPRAZOLE
  13. PERINDOPRIL [Concomitant]
     Active Substance: PERINDOPRIL
  14. POLYETHYLENE GLYCOL [Concomitant]
     Active Substance: POLYETHYLENE GLYCOL
  15. PREDNISONE [Concomitant]
     Active Substance: PREDNISONE
  16. SENOKOT [Concomitant]
     Active Substance: SENNOSIDES
  17. SPIRONOLACTONE [Concomitant]
     Active Substance: SPIRONOLACTONE
  18. TINZAPARIN [Concomitant]
     Active Substance: TINZAPARIN

REACTIONS (2)
  - Death [Fatal]
  - Prescribed underdose [Unknown]

NARRATIVE: CASE EVENT DATE: 20221223
